FAERS Safety Report 6767456-0 (Version None)
Quarter: 2010Q2

REPORT INFORMATION
  Report Type: 
  Country: None (occurrence: None)
  Receive Date: 20100610
  Receipt Date: 20100602
  Transmission Date: 20101027
  Serious: Yes (Death)
  Sender: FDA-Public Use
  Company Number: 2010060010

PATIENT
  Age: 62 Year
  Sex: Male

DRUGS (3)
  1. ONSOLIS [Suspect]
     Dosage: (MAY BE TITRATED TO 3 FILMS QID) BU;  (400 MCG,Q 4-5 HOURS PRN), BU
     Route: 002
     Dates: start: 20100301, end: 20100401
  2. DURAGESIC-100 [Concomitant]
  3. ACETAMINOPHEN AND HYDROCODONE BITARTRATE [Concomitant]

REACTIONS (1)
  - DEATH [None]
